FAERS Safety Report 6308395-9 (Version None)
Quarter: 2009Q3

REPORT INFORMATION
  Report Type: 
  Country: None (occurrence: None)
  Receive Date: 20090813
  Receipt Date: 20090804
  Transmission Date: 20100115
  Serious: Yes (Hospitalization)
  Sender: FDA-Public Use
  Company Number: BR-AVENTIS-200918336GDDC

PATIENT
  Age: 5 Year
  Sex: Female
  Weight: 24 kg

DRUGS (4)
  1. LANTUS [Suspect]
     Route: 058
     Dates: start: 20060101
  2. LANTUS [Suspect]
     Route: 058
  3. AUTOPEN 24 [Suspect]
  4. REGULAR INSULIN [Concomitant]
     Dosage: FREQUENCY: BEFORE MEALS
     Route: 058
     Dates: start: 20060101

REACTIONS (7)
  - BLOOD GLUCOSE FLUCTUATION [None]
  - DIARRHOEA [None]
  - FEELING ABNORMAL [None]
  - OFF LABEL USE [None]
  - PYREXIA [None]
  - ROTAVIRUS INFECTION [None]
  - VOMITING [None]
